FAERS Safety Report 17529280 (Version 2)
Quarter: 2020Q1

REPORT INFORMATION
  Report Type: Spontaneous
  Country: US (occurrence: US)
  Receive Date: 20200312
  Receipt Date: 20200321
  Transmission Date: 20200409
  Serious: Yes (Hospitalization, Other)
  Sender: FDA-Public Use
  Company Number: US-AMGEN-USASP2020038641

PATIENT
  Age: 13 Year
  Sex: Female
  Weight: 38.6 kg

DRUGS (21)
  1. BLINCYTO [Suspect]
     Active Substance: BLINATUMOMAB
     Dosage: UNK
     Route: 042
  2. CYTOSAR [Concomitant]
     Active Substance: CYTARABINE
     Dosage: 70 MILLIGRAM
     Route: 037
  3. BACTRIM [Concomitant]
     Active Substance: SULFAMETHOXAZOLE\TRIMETHOPRIM
     Dosage: 400-80 MG TABLET 120 MG OF TRIMETHOPRIM
     Route: 048
  4. BLINCYTO [Suspect]
     Active Substance: BLINATUMOMAB
     Dosage: 18.8 MICROGRAM, QD
     Route: 042
     Dates: start: 20200229, end: 20200301
  5. APRESOLINE HYDROCHLORIDE [Concomitant]
     Active Substance: HYDRALAZINE HYDROCHLORIDE
     Dosage: 6 MILLIGRAM, AS NECESSARY
     Route: 042
  6. DEXTROSE. [Concomitant]
     Active Substance: DEXTROSE
     Dosage: 5 PERCENT, AS NECESSARY
     Route: 042
  7. SEPTRA [Concomitant]
     Active Substance: SULFAMETHOXAZOLE\TRIMETHOPRIM
     Dosage: 400-80 MG TABLET 120 MG OF TRIMETHOPRIM, BID
     Route: 048
  8. ZOVIRAX [Concomitant]
     Active Substance: ACYCLOVIR
     Dosage: 400 MILLIGRAM, BID
     Route: 048
  9. HYDROCORTISON [HYDROCORTISONE] [Concomitant]
     Dosage: 1 PERCENT, BID
     Route: 061
  10. MOTRIN [Concomitant]
     Active Substance: IBUPROFEN
     Dosage: 375 MILLIGRAM, AS NECESSARY
     Route: 048
  11. KLOR-CON [Concomitant]
     Active Substance: POTASSIUM CHLORIDE
     Dosage: 40 MILLIEQUIVALENT, BID
     Route: 048
  12. ADVIL [IBUPROFEN] [Concomitant]
     Active Substance: IBUPROFEN
     Dosage: 375 MILLIGRAM, AS NECESSARY
     Route: 048
  13. LIDOCAINE. [Concomitant]
     Active Substance: LIDOCAINE
     Dosage: 4 PERCENT, AS NECESSARY
     Route: 061
  14. BLINCYTO [Suspect]
     Active Substance: BLINATUMOMAB
     Indication: ACUTE LYMPHOCYTIC LEUKAEMIA RECURRENT
     Dosage: 15 MICROGRAM/M2, QD
     Route: 042
     Dates: start: 20200229, end: 20200301
  15. TYLENOL [Concomitant]
     Active Substance: ACETAMINOPHEN
     Dosage: 500 MILLIGRAM, Q6H
     Route: 048
  16. VITAMIN D3 [Concomitant]
     Active Substance: CHOLECALCIFEROL
     Dosage: 2000 UNIT, QD
     Route: 048
  17. MIRALAX [Concomitant]
     Active Substance: POLYETHYLENE GLYCOL 3350
     Dosage: 17 GRAM, AS NECESSARY
     Route: 048
  18. SODIUM CHLORIDE 0.9% [Concomitant]
     Active Substance: SODIUM CHLORIDE
     Dosage: 0.9 PERCENT, QD
     Route: 042
  19. LOTRIMIN [Concomitant]
     Active Substance: CLOTRIMAZOLE
     Dosage: 1 PERCENT, BID
     Route: 061
  20. ATIVAN [Concomitant]
     Active Substance: LORAZEPAM
     Dosage: 1 MILLIGRAM, AS NECESSARY
     Route: 042
  21. HEPARIN [Concomitant]
     Active Substance: HEPARIN SODIUM
     Dosage: 10 UNIT/ML, AS NECESSARY
     Route: 042

REACTIONS (1)
  - Generalised tonic-clonic seizure [Recovered/Resolved]

NARRATIVE: CASE EVENT DATE: 20200301
